FAERS Safety Report 4818329-1 (Version None)
Quarter: 2005Q4

REPORT INFORMATION
  Report Type: 
  Country: None (occurrence: None)
  Receive Date: 20051102
  Receipt Date: 20050914
  Transmission Date: 20060501
  Serious: Yes (Death, Hospitalization)
  Sender: FDA-Public Use
  Company Number: PHBS2005JP13519

PATIENT
  Age: 35 Year
  Sex: Female
  Weight: 45 kg

DRUGS (4)
  1. GLEEVEC [Suspect]
     Indication: CHRONIC MYELOID LEUKAEMIA
     Dosage: 200 MG/D
     Route: 048
     Dates: start: 20021227
  2. GLEEVEC [Suspect]
     Dosage: 200 MG/D
     Route: 048
     Dates: end: 20030330
  3. GLEEVEC [Suspect]
     Dosage: 400 MG/D
     Route: 048
     Dates: start: 20030331
  4. GLEEVEC [Suspect]
     Dosage: 800 MG/D
     Route: 048
     Dates: start: 20030701, end: 20030723

REACTIONS (7)
  - ABDOMINAL PAIN [None]
  - ASTHENIA [None]
  - BLOOD PRESSURE DECREASED [None]
  - GASTROINTESTINAL HAEMORRHAGE [None]
  - INTESTINAL ULCER [None]
  - MELAENA [None]
  - STOMATITIS [None]
